FAERS Safety Report 8338842-2 (Version None)
Quarter: 2012Q2

REPORT INFORMATION
  Report Type: 
  Country: None (occurrence: None)
  Receive Date: 20120504
  Receipt Date: 20120501
  Transmission Date: 20120825
  Serious: Yes (Other)
  Sender: FDA-Public Use
  Company Number: US-MERCK-1202USA04381

PATIENT
  Age: 44 Year
  Sex: Female
  Weight: 88 kg

DRUGS (3)
  1. HYDROCHLOROTHIAZIDE [Concomitant]
     Indication: HYPERTENSION
     Route: 048
  2. SYNTHROID [Concomitant]
     Indication: HYPOTHYROIDISM
     Route: 048
  3. ZOCOR [Suspect]
     Indication: BLOOD CHOLESTEROL
     Route: 048

REACTIONS (6)
  - DRUG HYPERSENSITIVITY [None]
  - PRODUCT COLOUR ISSUE [None]
  - RASH ERYTHEMATOUS [None]
  - FLUSHING [None]
  - BLISTER [None]
  - SKIN EXFOLIATION [None]
